FAERS Safety Report 9173211 (Version 1)
Quarter: 2013Q1

REPORT INFORMATION
  Report Type: Spontaneous
  Country: US (occurrence: None)
  Receive Date: 20130319
  Receipt Date: 20130319
  Transmission Date: 20140127
  Serious: Yes (Hospitalization)
  Sender: FDA-Public Use
  Company Number: None

PATIENT
  Age: 61 Year
  Sex: Male
  Weight: 113.4 kg

DRUGS (1)
  1. CIPROFLOXACIN 500MG [Suspect]
     Indication: EAR INFECTION
     Route: 048
     Dates: start: 20130226, end: 20130226

REACTIONS (9)
  - Pruritus [None]
  - Wrist fracture [None]
  - Lip swelling [None]
  - Urticaria [None]
  - Pain in extremity [None]
  - Local swelling [None]
  - Musculoskeletal pain [None]
  - Drug ineffective [None]
  - Arthralgia [None]
